FAERS Safety Report 9365202 (Version 2)
Quarter: 2013Q3

REPORT INFORMATION
  Report Type: Spontaneous
  Country: US (occurrence: US)
  Receive Date: 20130624
  Receipt Date: 20130801
  Transmission Date: 20140515
  Serious: Yes (Other)
  Sender: FDA-Public Use
  Company Number: US-RB-055205-13

PATIENT
  Age: 31 Year
  Sex: Female

DRUGS (2)
  1. SUBOXONE FILM [Suspect]
     Indication: DRUG DEPENDENCE
     Dosage: SUBOXONE FILM
     Route: 060
     Dates: start: 201304
  2. METHADONE [Suspect]
     Indication: DRUG DEPENDENCE
     Dosage: DOSING DETAILS UNKNOWN
     Route: 065
     Dates: start: 201211, end: 201304

REACTIONS (5)
  - Road traffic accident [Recovered/Resolved]
  - Abortion spontaneous [Recovered/Resolved]
  - Injury [Unknown]
  - Exposure during pregnancy [Recovered/Resolved]
  - Rash [Recovered/Resolved]
